FAERS Safety Report 6280156-9 (Version None)
Quarter: 2009Q3

REPORT INFORMATION
  Report Type: 
  Country: None (occurrence: None)
  Receive Date: 20090723
  Receipt Date: 20090714
  Transmission Date: 20100115
  Serious: Yes (Hospitalization)
  Sender: FDA-Public Use
  Company Number: PHHY2008AT11072

PATIENT
  Sex: Male
  Weight: 81 kg

DRUGS (5)
  1. CERTICAN [Suspect]
     Indication: RENAL TRANSPLANT
     Dosage: 1 MG,
     Route: 048
     Dates: start: 20080605, end: 20080616
  2. SANDIMMUNE [Concomitant]
     Indication: RENAL TRANSPLANT
     Dosage: 50 MG
     Route: 048
     Dates: start: 20080526, end: 20080616
  3. SANDIMMUNE [Concomitant]
     Dosage: 100 MG
     Route: 048
     Dates: start: 20080616
  4. APREDNISLON [Concomitant]
     Indication: RENAL TRANSPLANT
     Dosage: 5 MG
     Route: 048
  5. APREDNISLON [Concomitant]
     Dosage: 15 MG
     Route: 048
     Dates: start: 20080616

REACTIONS (6)
  - ARTHRALGIA [None]
  - ARTHRITIS [None]
  - C-REACTIVE PROTEIN ABNORMAL [None]
  - GENERALISED ERYTHEMA [None]
  - INFLAMMATION [None]
  - JOINT WARMTH [None]
